FAERS Safety Report 16251120 (Version 1)
Quarter: 2019Q2

REPORT INFORMATION
  Report Type: Spontaneous
  Country: US (occurrence: US)
  Receive Date: 20190426
  Receipt Date: 20190426
  Transmission Date: 20190711
  Serious: Yes (Hospitalization)
  Sender: FDA-Public Use
  Company Number: None

PATIENT
  Age: 49 Year
  Sex: Male
  Weight: 55.8 kg

DRUGS (1)
  1. ISOVUE 300 [Suspect]
     Active Substance: IOPAMIDOL
     Route: 042

REACTIONS (3)
  - Pruritus generalised [None]
  - Throat tightness [None]
  - Contrast media reaction [None]

NARRATIVE: CASE EVENT DATE: 20190426
